FAERS Safety Report 8419579-8 (Version None)
Quarter: 2012Q2

REPORT INFORMATION
  Report Type: 
  Country: None (occurrence: None)
  Receive Date: 20120607
  Receipt Date: 20120605
  Transmission Date: 20120825
  Serious: Yes (Death, Life-Threatening, Hospitalization)
  Sender: FDA-Public Use
  Company Number: DK-ROCHE-725793

PATIENT
  Age: 57 Year
  Sex: Male
  Weight: 75 kg

DRUGS (13)
  1. FLUDARABINE PHOSPHATE [Suspect]
     Indication: CHRONIC LYMPHOCYTIC LEUKAEMIA
     Route: 042
  2. FLUDARABINE PHOSPHATE [Suspect]
     Dosage: DATE OF LAST DOSE: 19 NOVEMBER 2010.
     Route: 042
  3. ACYCLOVIR [Concomitant]
     Dosage: FREQUENCY:DAILY
  4. SULFAMETHOXAZOLE AND TRIMETHOPRIM [Concomitant]
     Dosage: TDD: 400/80 MG
     Dates: start: 20100824, end: 20101103
  5. MABTHERA [Suspect]
     Indication: CHRONIC LYMPHOCYTIC LEUKAEMIA
     Route: 042
  6. MABTHERA [Suspect]
     Dosage: DATE OF LAST DOSE: 19 NOVEMBER  2010
     Route: 042
  7. CYCLOPHOSPHAMIDE [Suspect]
     Dosage: LAST DOSE PRIOR TO SAE 08 OCT 2010
     Route: 042
  8. FLUDARABINE PHOSPHATE [Suspect]
     Route: 042
  9. ACYCLOVIR [Concomitant]
     Dates: start: 20101014, end: 20110103
  10. MABTHERA [Suspect]
     Dosage: LAST DOSE PRIOR TO SAE 08 OCT 2010
     Route: 042
  11. CYCLOPHOSPHAMIDE [Suspect]
     Dosage: DATE OF LAST DOSE: 19 NOVEMBER 2010.
     Route: 042
  12. ACYCLOVIR [Concomitant]
     Dates: start: 20110102, end: 20110109
  13. CYCLOPHOSPHAMIDE [Suspect]
     Indication: CHRONIC LYMPHOCYTIC LEUKAEMIA
     Route: 042

REACTIONS (3)
  - LEUKOENCEPHALOPATHY [None]
  - INFECTION [None]
  - FEBRILE NEUTROPENIA [None]
